FAERS Safety Report 16464359 (Version 8)
Quarter: 2020Q3

REPORT INFORMATION
  Report Type: Spontaneous
  Country: JP (occurrence: JP)
  Receive Date: 20190621
  Receipt Date: 20200819
  Transmission Date: 20201102
  Serious: Yes (Hospitalization, Other)
  Sender: FDA-Public Use
  Company Number: JP-AMGEN-JPNSP2019097073

PATIENT
  Age: 65 Year
  Sex: Female
  Weight: 76 kg

DRUGS (19)
  1. PARSABIV [Suspect]
     Active Substance: ETELCALCETIDE HYDROCHLORIDE
     Dosage: 2.5 MILLIGRAM, QWK
     Route: 010
     Dates: start: 20200111
  2. NESP [Concomitant]
     Active Substance: DARBEPOETIN ALFA
     Dosage: 20 MICROGRAM, QWK
     Route: 065
     Dates: start: 20190615, end: 20190906
  3. MAXACALCITOL [Concomitant]
     Active Substance: MAXACALCITOL
     Dosage: 2.5 MICROGRAM, 3 TIMES/WK
     Route: 010
     Dates: start: 20200218
  4. PARSABIV [Suspect]
     Active Substance: ETELCALCETIDE HYDROCHLORIDE
     Dosage: 2.5 MILLIGRAM, 3 TIMES/WK
     Route: 010
     Dates: start: 20190716, end: 20200101
  5. PARSABIV [Suspect]
     Active Substance: ETELCALCETIDE HYDROCHLORIDE
     Indication: HYPERPARATHYROIDISM SECONDARY
     Dosage: 5 MILLIGRAM
     Route: 010
     Dates: end: 20181011
  6. PARSABIV [Suspect]
     Active Substance: ETELCALCETIDE HYDROCHLORIDE
     Dosage: 5 MILLIGRAM, 3 TIMES/WK
     Route: 010
     Dates: start: 20190413, end: 20190715
  7. NESP [Concomitant]
     Active Substance: DARBEPOETIN ALFA
     Dosage: 30 MICROGRAM, QWK
     Route: 065
     Dates: start: 20200104, end: 20200403
  8. FESIN MITSUBISHI [Concomitant]
     Dosage: 80 MILLIGRAM, QWK
     Route: 065
     Dates: start: 20200121, end: 20200222
  9. NESP [Concomitant]
     Active Substance: DARBEPOETIN ALFA
     Dosage: 20 MICROGRAM, QWK
     Route: 065
     Dates: start: 20200404, end: 20200529
  10. PRECIPITATED CALCIUM CARBONATE [Concomitant]
     Active Substance: CALCIUM CARBONATE
     Dosage: 3000 MILLIGRAM, QD
     Route: 048
  11. NESP [Concomitant]
     Active Substance: DARBEPOETIN ALFA
     Dosage: 30 MICROGRAM, QWK
     Route: 065
     Dates: start: 20200530
  12. MAXACALCITOL [Concomitant]
     Active Substance: MAXACALCITOL
     Dosage: 2.5 MICROGRAM, 2 TIMES/WK
     Route: 010
     Dates: start: 20190914, end: 20191115
  13. NESP [Concomitant]
     Active Substance: DARBEPOETIN ALFA
     Dosage: 10 MICROGRAM, QWK
     Route: 065
     Dates: start: 20190426, end: 20190513
  14. MAXACALCITOL [Concomitant]
     Active Substance: MAXACALCITOL
     Dosage: 5 MICROGRAM, 3 TIMES/WK (5 UG, Q56H)
     Route: 010
     Dates: start: 20200123, end: 20200217
  15. MAXACALCITOL [Concomitant]
     Active Substance: MAXACALCITOL
     Dosage: 2.5 MICROGRAM, 3 TIMES/WK
     Route: 010
     Dates: start: 20181013, end: 20190518
  16. NESP [Concomitant]
     Active Substance: DARBEPOETIN ALFA
     Dosage: 20 MICROGRAM, QWK
     Route: 065
     Dates: start: 20190907, end: 20191230
  17. MAXACALCITOL [Concomitant]
     Active Substance: MAXACALCITOL
     Dosage: 5 MICROGRAM, 3 TIMES/WK
     Route: 010
     Dates: start: 20190521, end: 20190816
  18. MAXACALCITOL [Concomitant]
     Active Substance: MAXACALCITOL
     Dosage: 2.5 MICROGRAM, 3 TIMES/WK
     Route: 010
     Dates: start: 20191116, end: 20200122
  19. FESIN MITSUBISHI [Concomitant]
     Dosage: 80 MILLIGRAM, QWK
     Route: 065
     Dates: start: 20190513, end: 20190614

REACTIONS (6)
  - Shunt occlusion [Recovered/Resolved]
  - Shunt stenosis [Recovered/Resolved]
  - Shunt occlusion [Recovered/Resolved]
  - Shunt occlusion [Recovered/Resolved]
  - Shunt occlusion [Recovered/Resolved]
  - Shunt stenosis [Recovered/Resolved]

NARRATIVE: CASE EVENT DATE: 20190405
